FAERS Safety Report 5415558-3 (Version None)
Quarter: 2007Q3

REPORT INFORMATION
  Report Type: 
  Country: None (occurrence: None)
  Receive Date: 20070815
  Receipt Date: 20070806
  Transmission Date: 20080115
  Serious: Yes (Other)
  Sender: FDA-Public Use
  Company Number: B0483355A

PATIENT
  Sex: Female
  Weight: 55 kg

DRUGS (3)
  1. AVANDAMET [Suspect]
     Dosage: 4MG UNKNOWN
     Route: 048
     Dates: start: 20070420, end: 20070424
  2. AMLODIPINE [Concomitant]
     Dosage: 5MG UNKNOWN
  3. OLMESARTAN MEDOXOMIL [Concomitant]

REACTIONS (1)
  - GOITRE [None]
